FAERS Safety Report 12246748 (Version 1)
Quarter: 2016Q2

REPORT INFORMATION
  Report Type: Spontaneous
  Country: FR (occurrence: FR)
  Receive Date: 20160407
  Receipt Date: 20160407
  Transmission Date: 20160815
  Serious: Yes (Other)
  Sender: FDA-Public Use
  Company Number: FR-SA-2016SA069413

PATIENT
  Age: 48 Year
  Sex: Female

DRUGS (2)
  1. FUROSEMIDE ZENTIVA [Suspect]
     Active Substance: FUROSEMIDE
     Route: 065
     Dates: start: 20160211, end: 20160217
  2. FUROSEMIDE ZENTIVA [Suspect]
     Active Substance: FUROSEMIDE
     Route: 065
     Dates: start: 20160218, end: 20160225

REACTIONS (1)
  - Hepatocellular injury [Recovered/Resolved]

NARRATIVE: CASE EVENT DATE: 20160223
